FAERS Safety Report 11006101 (Version 1)
Quarter: 2015Q2

REPORT INFORMATION
  Report Type: Spontaneous
  Country: US (occurrence: US)
  Receive Date: 20150409
  Receipt Date: 20150409
  Transmission Date: 20150821
  Serious: Yes (Death, Hospitalization, Other)
  Sender: FDA-Public Use
  Company Number: US-ASTRAZENECA-2013SE91434

PATIENT
  Age: 21381 Day
  Sex: Male
  Weight: 96.6 kg

DRUGS (27)
  1. BYETTA [Suspect]
     Active Substance: EXENATIDE
     Dosage: 10 MCG/0.04
     Route: 058
     Dates: start: 20081002
  2. NOVOLOG [Concomitant]
     Active Substance: INSULIN ASPART
     Dosage: 100/MLINJECT BY SUBCUTANEOUS ROUTE AS PER INSULIN SLIDING SCALE PROTOCOL
     Route: 058
     Dates: start: 20110826
  3. HYDROCODON-ACETAMINOPHEN [Concomitant]
     Active Substance: ACETAMINOPHEN\HYDROCODONE
     Dosage: 10MG-500MG Q4H PRN
     Route: 048
     Dates: start: 20110930
  4. BYETTA [Suspect]
     Active Substance: EXENATIDE
     Route: 065
     Dates: start: 200809, end: 201104
  5. JANUMET [Suspect]
     Active Substance: METFORMIN HYDROCHLORIDE\SITAGLIPTIN PHOSPHATE
     Route: 065
     Dates: start: 200709, end: 200808
  6. JANUMET [Suspect]
     Active Substance: METFORMIN HYDROCHLORIDE\SITAGLIPTIN PHOSPHATE
     Dosage: 50MG-500MG TAKE ONE TABLET BY MOUTH TWO TIMES PER DAY.
     Route: 048
     Dates: start: 20071113
  7. TOPROL XL [Concomitant]
     Active Substance: METOPROLOL SUCCINATE
     Route: 048
     Dates: start: 20110826
  8. ZOCOR [Concomitant]
     Active Substance: SIMVASTATIN
     Route: 048
     Dates: start: 20090717
  9. ROXANOL [Concomitant]
     Active Substance: MORPHINE SULFATE
     Dosage: 20 MG/ML. 1-2 CO PO EVERY 1-2 HR PM
     Route: 048
     Dates: start: 20110930
  10. ALLOPURINOL. [Concomitant]
     Active Substance: ALLOPURINOL
     Route: 048
     Dates: start: 20110826
  11. AMARYL [Concomitant]
     Active Substance: GLIMEPIRIDE
     Route: 048
     Dates: start: 20110131
  12. LEVEMIR [Concomitant]
     Active Substance: INSULIN DETEMIR
     Dosage: 100/MLINJECT BY SUBCUTANEOUS ROUTE AS PER INSULIN SLIDING SCALE PROTOCOL
     Route: 058
     Dates: start: 20110826
  13. METFORMIN HCL [Concomitant]
     Active Substance: METFORMIN HYDROCHLORIDE
     Route: 048
     Dates: start: 20090619
  14. METFORMIN HCL [Concomitant]
     Active Substance: METFORMIN HYDROCHLORIDE
     Route: 048
     Dates: start: 20110131
  15. LISINOPRIL. [Concomitant]
     Active Substance: LISINOPRIL
     Route: 048
     Dates: start: 20110131
  16. PROMETHAZINE [Concomitant]
     Active Substance: PROMETHAZINE\PROMETHAZINE HYDROCHLORIDE
     Route: 048
  17. PROTONIX [Concomitant]
     Active Substance: PANTOPRAZOLE SODIUM
     Route: 048
     Dates: start: 20110826
  18. AMLODIPINE BESYLATE. [Concomitant]
     Active Substance: AMLODIPINE BESYLATE
     Dates: start: 20090717
  19. ONDANSETRON [Concomitant]
     Active Substance: ONDANSETRON
     Route: 048
     Dates: start: 20110508
  20. HYDROCODON-ACETAMINOPHEN [Concomitant]
     Active Substance: ACETAMINOPHEN\HYDROCODONE
     Dates: start: 20110202
  21. PREDNISONE. [Concomitant]
     Active Substance: PREDNISONE
     Dates: start: 20110930
  22. BYETTA [Suspect]
     Active Substance: EXENATIDE
     Dosage: 10MCG/0.04. INJECT 0.04 MILLILITER 2 TIMES EVERY DAY BEFORE MOMING AND EVENING MEALS.
     Route: 058
     Dates: start: 20110131
  23. ATIVAN [Concomitant]
     Active Substance: LORAZEPAM
     Route: 048
     Dates: start: 20110826
  24. ALLOPURINOL. [Concomitant]
     Active Substance: ALLOPURINOL
     Route: 048
     Dates: start: 20090619
  25. ZOCOR [Concomitant]
     Active Substance: SIMVASTATIN
     Route: 048
     Dates: start: 20110131
  26. COREG [Concomitant]
     Active Substance: CARVEDILOL
     Route: 048
     Dates: start: 20090407
  27. AMARYL [Concomitant]
     Active Substance: GLIMEPIRIDE
     Route: 048
     Dates: start: 20090407

REACTIONS (10)
  - Colon cancer [Unknown]
  - Metastases to gastrointestinal tract [Unknown]
  - Metastases to peritoneum [Unknown]
  - Pancreatitis acute [Unknown]
  - Metastases to lung [Unknown]
  - Jaundice cholestatic [Unknown]
  - Pancreatic carcinoma metastatic [Fatal]
  - Ascites [Unknown]
  - Metastases to liver [Unknown]
  - Metastases to gallbladder [Unknown]

NARRATIVE: CASE EVENT DATE: 20110228
